FAERS Safety Report 8943829 (Version 1)
Quarter: 2012Q4

REPORT INFORMATION
  Report Type: 
  Country: US (occurrence: US)
  Receive Date: 20121204
  Receipt Date: 20121204
  Transmission Date: 20130627
  Serious: Yes (Other)
  Sender: FDA-Public Use
  Company Number: US-BRISTOL-MYERS SQUIBB COMPANY-17157066

PATIENT
  Age: 71 Year
  Sex: Female

DRUGS (1)
  1. YERVOY [Suspect]
     Dosage: 2nd dose:02Nov12 ,3rd:20Nov12
     Dates: start: 20121012

REACTIONS (3)
  - Pleural effusion [Unknown]
  - Pulmonary mass [Unknown]
  - Lymphadenopathy [Unknown]
